FAERS Safety Report 7148941-9 (Version None)
Quarter: 2010Q4

REPORT INFORMATION
  Report Type: 
  Country: None (occurrence: None)
  Receive Date: 20101209
  Receipt Date: 20101201
  Transmission Date: 20110411
  Serious: Yes (Other)
  Sender: FDA-Public Use
  Company Number: A0898665A

PATIENT
  Age: 59 Year
  Sex: Male

DRUGS (10)
  1. AVANDIA [Suspect]
     Indication: BLOOD GLUCOSE INCREASED
     Dosage: 4MG TWICE PER DAY
     Route: 048
     Dates: start: 20091201
  2. METFORMIN [Suspect]
     Indication: BLOOD GLUCOSE INCREASED
     Route: 048
  3. VYTORIN [Concomitant]
  4. ASPIRIN [Concomitant]
  5. ENALAPRIL MALEATE [Concomitant]
  6. NIASPAN [Concomitant]
  7. GLIPIZIDE [Concomitant]
  8. UNSPECIFIED MEDICATION [Concomitant]
  9. PLAVIX [Concomitant]
  10. METOPROLOL [Concomitant]

REACTIONS (4)
  - FATIGUE [None]
  - HYPOGLYCAEMIA [None]
  - ILL-DEFINED DISORDER [None]
  - LISTLESS [None]
